FAERS Safety Report 6053112-3 (Version None)
Quarter: 2009Q1

REPORT INFORMATION
  Report Type: 
  Country: None (occurrence: None)
  Receive Date: 20090122
  Receipt Date: 20090112
  Transmission Date: 20090719
  Serious: Yes (Death)
  Sender: FDA-Public Use
  Company Number: 2008S1000442

PATIENT
  Age: 63 Year
  Sex: Female
  Weight: 116.7 kg

DRUGS (20)
  1. CUBICIN [Suspect]
     Indication: CATHETER BACTERAEMIA
     Dosage: 6 MG/KG; Q48H; IV
     Route: 042
     Dates: start: 20081017
  2. AMIODARONE HCL [Concomitant]
  3. AMLODIPINE [Concomitant]
  4. FAMOTIDINE [Concomitant]
  5. FUROSEMIDE [Concomitant]
  6. INSULIN GLARGINE [Concomitant]
  7. VANCOMYCIN [Concomitant]
  8. VERAPAMIL [Concomitant]
  9. LISINOPRIL [Concomitant]
  10. CYMBALTA [Concomitant]
  11. ZOCOR [Concomitant]
  12. MORPHINE [Concomitant]
  13. PANCREATIC ENZYMES [Concomitant]
  14. SODIUM BICARBONATE [Concomitant]
  15. PEPCID [Concomitant]
  16. FRAGMIN [Concomitant]
  17. POTASSIUM CHLORIDE [Concomitant]
  18. MAGNESIUM SULFATE [Concomitant]
  19. IPRATROPIUM BROMIDE [Concomitant]
  20. ALBUTEROL SULATE [Concomitant]

REACTIONS (1)
  - SEPSIS [None]
